FAERS Safety Report 15850245 (Version 1)
Quarter: 2019Q1

REPORT INFORMATION
  Report Type: Spontaneous
  Country: US (occurrence: US)
  Receive Date: 20190121
  Receipt Date: 20190121
  Transmission Date: 20190417
  Serious: No
  Sender: FDA-Public Use
  Company Number: US-PFIZER INC-2019022449

PATIENT
  Age: 45 Year
  Sex: Female

DRUGS (4)
  1. HUMIRA [Suspect]
     Active Substance: ADALIMUMAB
     Dosage: 40 MG, WEEKLY
     Route: 058
  2. METHOTREXATE SODIUM. [Suspect]
     Active Substance: METHOTREXATE SODIUM
     Dosage: 20 MG, WEEKLY
  3. HUMIRA [Suspect]
     Active Substance: ADALIMUMAB
     Dosage: UNK, LOADING DOSE
     Route: 058
  4. HUMIRA [Suspect]
     Active Substance: ADALIMUMAB
     Dosage: 40 MG, EVERY OTHER WEEK
     Route: 058

REACTIONS (6)
  - Enthesopathy [Unknown]
  - Neck pain [Unknown]
  - Arthralgia [Unknown]
  - Joint effusion [Unknown]
  - Musculoskeletal stiffness [Unknown]
  - Joint swelling [Unknown]
